FAERS Safety Report 6925049-6 (Version None)
Quarter: 2010Q3

REPORT INFORMATION
  Report Type: 
  Country: None (occurrence: None)
  Receive Date: 20100816
  Receipt Date: 20100806
  Transmission Date: 20110219
  Serious: Yes (Other)
  Sender: FDA-Public Use
  Company Number: US-PFIZER INC-2010099801

PATIENT
  Sex: Female
  Weight: 40.816 kg

DRUGS (1)
  1. DEPO-PROVERA [Suspect]

REACTIONS (3)
  - AMENORRHOEA [None]
  - INFERTILITY [None]
  - MENORRHAGIA [None]
